FAERS Safety Report 8962402 (Version 1)
Quarter: 2012Q4

REPORT INFORMATION
  Report Type: Spontaneous
  Country: US (occurrence: None)
  Receive Date: 20121211
  Receipt Date: 20121211
  Transmission Date: 20130627
  Serious: Yes (Life-Threatening, Hospitalization)
  Sender: FDA-Public Use
  Company Number: None

PATIENT

DRUGS (2)
  1. SPIRONOLACTONE [Suspect]
     Indication: HYPERTENSION
     Dates: start: 20110908, end: 20120317
  2. SPIRONOLACTONE [Suspect]
     Indication: OEDEMA
     Dates: start: 20110908, end: 20120317

REACTIONS (2)
  - Acidosis [None]
  - Renal failure acute [None]
